FAERS Safety Report 23645194 (Version 1)
Quarter: 2024Q1

REPORT INFORMATION
  Report Type: Spontaneous
  Country: SI (occurrence: SI)
  Receive Date: 20240318
  Receipt Date: 20240318
  Transmission Date: 20240410
  Serious: Yes (Hospitalization)
  Sender: FDA-Public Use
  Company Number: SI-KRKA-SI2022K15006SPO

PATIENT
  Age: 62 Year
  Sex: Female

DRUGS (4)
  1. SYNJARDY [Suspect]
     Active Substance: EMPAGLIFLOZIN\METFORMIN HYDROCHLORIDE
     Indication: Product used for unknown indication
     Dosage: 12,5 MG/1000 MG, SINGLE DOSE
     Route: 048
     Dates: start: 20220622
  2. OZEMPIC [Suspect]
     Active Substance: SEMAGLUTIDE
     Indication: Product used for unknown indication
     Route: 048
     Dates: start: 20220622
  3. INSULIN ASPART [Suspect]
     Active Substance: INSULIN ASPART
     Indication: Product used for unknown indication
     Dosage: 50 UNK, SINGLE DOSE
     Route: 058
     Dates: start: 20220622
  4. ACETAMINOPHEN\TRAMADOL HYDROCHLORIDE [Suspect]
     Active Substance: ACETAMINOPHEN\TRAMADOL HYDROCHLORIDE
     Indication: Product used for unknown indication
     Dosage: 10 DF (75/650 MG), SINGLE DOSE
     Route: 048
     Dates: start: 20220622

REACTIONS (3)
  - Vomiting [Unknown]
  - Loss of consciousness [Unknown]
  - Intentional overdose [Unknown]

NARRATIVE: CASE EVENT DATE: 20220622
